FAERS Safety Report 8266197-0 (Version None)
Quarter: 2012Q2

REPORT INFORMATION
  Report Type: 
  Country: None (occurrence: None)
  Receive Date: 20120406
  Receipt Date: 20120404
  Transmission Date: 20120825
  Serious: Yes (Disabling, Other)
  Sender: FDA-Public Use
  Company Number: US-PFIZER INC-2012085718

PATIENT
  Sex: Female

DRUGS (3)
  1. ZOLOFT [Concomitant]
     Dosage: UNK
  2. VICODIN [Concomitant]
     Indication: PAIN
     Dosage: UNK
  3. LIPITOR [Suspect]
     Indication: BLOOD CHOLESTEROL INCREASED
     Dosage: 40 MG, 1X/DAY
     Route: 048

REACTIONS (2)
  - ROTATOR CUFF SYNDROME [None]
  - INTERVERTEBRAL DISC PROTRUSION [None]
